FAERS Safety Report 4407149-8 (Version None)
Quarter: 2004Q3

REPORT INFORMATION
  Report Type: 
  Country: None (occurrence: None)
  Receive Date: 20040723
  Receipt Date: 20040723
  Transmission Date: 20050211
  Serious: Yes (Other)
  Sender: FDA-Public Use
  Company Number: None

PATIENT
  Age: 47 Year
  Sex: Male
  Weight: 104.3 kg

DRUGS (2)
  1. GEMFIBROZIL [Suspect]
  2. ASPIRIN [Concomitant]

REACTIONS (1)
  - PARAESTHESIA [None]
